FAERS Safety Report 15212378 (Version 2)
Quarter: 2018Q3

REPORT INFORMATION
  Report Type: Spontaneous
  Country: US (occurrence: US)
  Receive Date: 20180730
  Receipt Date: 20180730
  Transmission Date: 20181010
  Serious: No
  Sender: FDA-Public Use
  Company Number: US-GALDERMA-US18021848

PATIENT
  Age: 18 Year
  Sex: Female

DRUGS (9)
  1. PROACTIV MD DEEP CLEANSING FACE WASH [Concomitant]
     Active Substance: COSMETICS
     Indication: ACNE
     Route: 061
     Dates: start: 201711, end: 20180330
  2. PROACTIV RENEWING CLEANSER [Concomitant]
     Active Substance: BENZOYL PEROXIDE
     Indication: ACNE
     Route: 061
     Dates: start: 201711, end: 20180330
  3. PROACTIV REPAIRING TREATMENT [Concomitant]
     Active Substance: BENZOYL PEROXIDE
     Indication: ACNE
     Route: 061
     Dates: start: 201711, end: 20180330
  4. PROACTIV EXTRA STRENGTH FORMULA CLEANSER [Concomitant]
     Active Substance: BENZOYL PEROXIDE
     Indication: ACNE
     Route: 061
     Dates: start: 201711, end: 20180330
  5. PROACTIV EXTRA STRENGTH FORMULA TONER [Concomitant]
     Active Substance: SALICYLIC ACID
     Indication: ACNE
     Route: 061
     Dates: start: 201711, end: 20180330
  6. PROACTIV EXTRA STRENGTH FORMULA TREATMENT [Concomitant]
     Indication: ACNE
     Route: 061
     Dates: start: 201711, end: 20180330
  7. PROACTIV MD DAILY OIL CONTROL SPF 30 [Suspect]
     Active Substance: AVOBENZONE\OCTISALATE\OCTOCRYLENE
     Indication: ACNE
     Route: 061
     Dates: start: 201711, end: 20180330
  8. PROACTIV REVITALIZING TONER [Concomitant]
     Indication: ACNE
     Route: 061
     Dates: start: 201707, end: 201708
  9. PROACTIV MD ADAPALENE ACNE TREATMENT [Suspect]
     Active Substance: ADAPALENE
     Indication: ACNE
     Dosage: 0.1%
     Route: 061
     Dates: start: 201711, end: 20180330

REACTIONS (5)
  - Skin irritation [Recovering/Resolving]
  - Erythema [Recovering/Resolving]
  - Seborrhoea [Recovering/Resolving]
  - Acne [Recovering/Resolving]
  - Acne pustular [Recovering/Resolving]

NARRATIVE: CASE EVENT DATE: 201711
